FAERS Safety Report 14903863 (Version 1)
Quarter: 2018Q2

REPORT INFORMATION
  Report Type: Spontaneous
  Country: US (occurrence: US)
  Receive Date: 20180516
  Receipt Date: 20180516
  Transmission Date: 20180711
  Serious: No
  Sender: FDA-Public Use
  Company Number: US-009507513-1805USA001407

PATIENT
  Age: 8 Year

DRUGS (2)
  1. CAPECITABINE. [Concomitant]
     Active Substance: CAPECITABINE
     Indication: NEUROENDOCRINE TUMOUR
     Dosage: UNK UNK, CYCLICAL
  2. TEMODAR [Suspect]
     Active Substance: TEMOZOLOMIDE
     Indication: NEUROENDOCRINE CARCINOMA
     Dosage: UNK UNK, CYCLICAL
     Route: 048

REACTIONS (1)
  - Product use in unapproved indication [Unknown]
